FAERS Safety Report 7284038-5 (Version None)
Quarter: 2011Q1

REPORT INFORMATION
  Report Type: 
  Country: None (occurrence: None)
  Receive Date: 20110209
  Receipt Date: 20101227
  Transmission Date: 20110831
  Serious: Yes (Death, Hospitalization, Other)
  Sender: FDA-Public Use
  Company Number: US-BAXTER-2009BH018299

PATIENT
  Age: 44 Year
  Sex: Male
  Weight: 83 kg

DRUGS (27)
  1. KLONOPIN [Concomitant]
     Indication: PRODUCT USED FOR UNKNOWN INDICATION
     Route: 048
  2. FOSRENOL [Concomitant]
     Indication: RENAL FAILURE CHRONIC
     Route: 048
     Dates: start: 20080201
  3. GRANULEX [Concomitant]
     Indication: PRODUCT USED FOR UNKNOWN INDICATION
     Route: 003
  4. HUMALOG [Concomitant]
     Indication: DIABETES MELLITUS
     Route: 058
     Dates: start: 20080201
  5. LANTUS [Concomitant]
     Indication: DIABETES MELLITUS
     Route: 065
     Dates: start: 20080201
  6. HEPARIN SODIUM INJECTION [Suspect]
     Route: 042
     Dates: start: 20071201, end: 20080208
  7. HEPARIN SODIUM INJECTION [Suspect]
     Route: 042
     Dates: start: 20080129, end: 20080208
  8. HEPARIN SODIUM INJECTION [Suspect]
     Route: 033
     Dates: start: 20060401, end: 20080201
  9. HEPARIN SODIUM INJECTION [Suspect]
     Route: 033
     Dates: start: 20060401, end: 20080201
  10. NOVOLOG [Concomitant]
     Indication: PRODUCT USED FOR UNKNOWN INDICATION
     Route: 058
  11. REGULAR INSULIN [Concomitant]
     Indication: PRODUCT USED FOR UNKNOWN INDICATION
     Route: 058
  12. HEPARIN SODIUM INJECTION [Suspect]
     Indication: CENTRAL VENOUS CATHETERISATION
     Route: 042
     Dates: start: 20071201, end: 20080208
  13. HEPARIN SODIUM INJECTION [Suspect]
     Indication: FIBRIN
     Route: 042
     Dates: start: 20071201, end: 20080208
  14. HEPARIN SODIUM INJECTION [Suspect]
     Route: 042
     Dates: start: 20071201, end: 20080208
  15. HEPARIN SODIUM INJECTION [Suspect]
     Route: 042
     Dates: start: 20080129, end: 20080208
  16. PANTOPRAZOLE [Concomitant]
     Indication: PRODUCT USED FOR UNKNOWN INDICATION
     Route: 048
  17. LOVENOX [Concomitant]
     Indication: PRODUCT USED FOR UNKNOWN INDICATION
     Route: 058
  18. ADVAIR [Concomitant]
     Indication: PRODUCT USED FOR UNKNOWN INDICATION
     Route: 055
  19. HEPARIN SODIUM INJECTION [Suspect]
     Indication: PERITONEAL DIALYSIS
     Route: 042
     Dates: start: 20071201, end: 20080208
  20. HEPARIN SODIUM INJECTION [Suspect]
     Route: 042
     Dates: start: 20071201, end: 20080208
  21. ZOLOFT [Concomitant]
     Indication: PRODUCT USED FOR UNKNOWN INDICATION
     Route: 048
  22. LISINOPRIL [Concomitant]
     Indication: PRODUCT USED FOR UNKNOWN INDICATION
     Route: 048
  23. HEPARIN SODIUM INJECTION [Suspect]
     Route: 042
     Dates: start: 20080129, end: 20080208
  24. HEPARIN SODIUM INJECTION [Suspect]
     Route: 033
     Dates: start: 20060401, end: 20080201
  25. SENSIPAR [Concomitant]
     Indication: PRODUCT USED FOR UNKNOWN INDICATION
     Route: 048
  26. LEVAQUIN [Concomitant]
     Indication: PRODUCT USED FOR UNKNOWN INDICATION
     Route: 042
  27. BENTYL [Concomitant]
     Indication: PRODUCT USED FOR UNKNOWN INDICATION
     Route: 065

REACTIONS (28)
  - CARDIAC ARREST [None]
  - LEG AMPUTATION [None]
  - CARDIAC TAMPONADE [None]
  - RESPIRATORY FAILURE [None]
  - HYPOXIC-ISCHAEMIC ENCEPHALOPATHY [None]
  - PERIPHERAL ARTERIAL OCCLUSIVE DISEASE [None]
  - SLEEP APNOEA SYNDROME [None]
  - PERICARDIAL EFFUSION [None]
  - UNRESPONSIVE TO STIMULI [None]
  - DIARRHOEA [None]
  - TYPE 1 DIABETES MELLITUS [None]
  - DYSPNOEA [None]
  - RESPIRATORY DEPRESSION [None]
  - RENAL FAILURE CHRONIC [None]
  - VENTRICULAR FIBRILLATION [None]
  - BLOOD GLUCOSE FLUCTUATION [None]
  - VOMITING [None]
  - HYPOTENSION [None]
  - CULTURE WOUND POSITIVE [None]
  - BLOOD ELECTROLYTES ABNORMAL [None]
  - HEADACHE [None]
  - NAUSEA [None]
  - PERIPHERAL VASCULAR DISORDER [None]
  - VENTRICULAR TACHYCARDIA [None]
  - GANGRENE [None]
  - ABDOMINAL PAIN UPPER [None]
  - ASTHENIA [None]
  - DECREASED APPETITE [None]
